FAERS Safety Report 13975784 (Version 7)
Quarter: 2018Q4

REPORT INFORMATION
  Report Type: Report from Study
  Country: JP (occurrence: JP)
  Receive Date: 20170915
  Receipt Date: 20181119
  Transmission Date: 20190204
  Serious: Yes (Hospitalization)
  Sender: FDA-Public Use
  Company Number: PHJP2017JP028200

PATIENT
  Age: 29 Year
  Sex: Male
  Weight: 89.2 kg

DRUGS (16)
  1. ILARIS [Suspect]
     Active Substance: CANAKINUMAB
     Dosage: 300 MG, UNK
     Route: 058
     Dates: start: 20170713
  2. CARBAMAZEPINE. [Concomitant]
     Active Substance: CARBAMAZEPINE
     Indication: FAMILIAL MEDITERRANEAN FEVER
     Dosage: UNK
     Route: 048
  3. ILARIS [Suspect]
     Active Substance: CANAKINUMAB
     Dosage: 150 MG, UNK
     Route: 058
     Dates: start: 20170614
  4. ILARIS [Suspect]
     Active Substance: CANAKINUMAB
     Dosage: 300 MG, UNK
     Route: 058
     Dates: start: 20171122
  5. MIGSIS [Concomitant]
     Active Substance: LOMERIZINE HYDROCHLORIDE
     Indication: FAMILIAL MEDITERRANEAN FEVER
     Dosage: UNK
     Route: 048
  6. OLOPATADINE HYDROCHLORIDE. [Concomitant]
     Active Substance: OLOPATADINE HYDROCHLORIDE
     Indication: PRODUCT USED FOR UNKNOWN INDICATION
     Dosage: UNK
     Route: 048
  7. ADOAIR [Concomitant]
     Active Substance: FLUTICASONE PROPIONATE\SALMETEROL XINAFOATE
     Indication: PRODUCT USED FOR UNKNOWN INDICATION
     Dosage: UNK
     Route: 055
  8. LOXONIN [Concomitant]
     Active Substance: LOXOPROFEN SODIUM
     Indication: PRODUCT USED FOR UNKNOWN INDICATION
     Dosage: UNK
     Route: 048
  9. ELIETEN [Concomitant]
     Active Substance: METOCLOPRAMIDE
     Indication: PRODUCT USED FOR UNKNOWN INDICATION
     Dosage: UNK
     Route: 048
  10. TULOBUTEROL [Concomitant]
     Active Substance: TULOBUTEROL
     Indication: ASTHMA
     Dosage: UNK
     Route: 062
  11. COLCHICINE. [Concomitant]
     Active Substance: COLCHICINE
     Indication: PRODUCT USED FOR UNKNOWN INDICATION
     Dosage: UNK
     Route: 065
  12. ILARIS [Suspect]
     Active Substance: CANAKINUMAB
     Dosage: 150 MG, UNK
     Route: 058
     Dates: start: 20170622
  13. FENTOS [Concomitant]
     Active Substance: FENTANYL
     Indication: PRODUCT USED FOR UNKNOWN INDICATION
     Dosage: UNK
     Route: 062
  14. PREDONINE [Concomitant]
     Active Substance: PREDNISOLONE
     Indication: FAMILIAL MEDITERRANEAN FEVER
     Dosage: UNK
     Route: 048
  15. ILARIS [Suspect]
     Active Substance: CANAKINUMAB
     Indication: FAMILIAL MEDITERRANEAN FEVER
     Dosage: 150 MG, UNK
     Route: 058
     Dates: start: 20170515
  16. CODEINE [Concomitant]
     Active Substance: CODEINE
     Indication: PRODUCT USED FOR UNKNOWN INDICATION
     Dosage: UNK
     Route: 048

REACTIONS (6)
  - Meniscus injury [Recovering/Resolving]
  - Infection [Unknown]
  - Malaise [Recovering/Resolving]
  - Pyrexia [Recovering/Resolving]
  - Gingivitis [Recovered/Resolved]
  - Gingival abscess [Recovering/Resolving]

NARRATIVE: CASE EVENT DATE: 201708
